FAERS Safety Report 26193891 (Version 1)
Quarter: 2025Q4

REPORT INFORMATION
  Report Type: Spontaneous
  Country: RU (occurrence: RU)
  Receive Date: 20251224
  Receipt Date: 20251224
  Transmission Date: 20260117
  Serious: Yes (Other)
  Sender: VERITY PHARMACEUTICALS INC.
  Company Number: RU-VER-202500016

PATIENT
  Age: 71 Year
  Sex: Male

DRUGS (10)
  1. TRIPTORELIN [Suspect]
     Active Substance: TRIPTORELIN
     Indication: Metastases to bone
     Route: 030
     Dates: start: 202103
  2. TRIPTORELIN [Suspect]
     Active Substance: TRIPTORELIN
     Indication: Prostate cancer metastatic
     Route: 030
     Dates: start: 202103
  3. TRIPTORELIN [Suspect]
     Active Substance: TRIPTORELIN
     Indication: Metastases to bone
     Route: 030
     Dates: start: 202209
  4. TRIPTORELIN [Suspect]
     Active Substance: TRIPTORELIN
     Indication: Prostate cancer metastatic
     Route: 030
     Dates: start: 202209
  5. TRIPTORELIN [Suspect]
     Active Substance: TRIPTORELIN
     Indication: Metastases to bone
     Route: 030
     Dates: start: 202312
  6. TRIPTORELIN [Suspect]
     Active Substance: TRIPTORELIN
     Indication: Prostate cancer metastatic
     Route: 030
     Dates: start: 202312
  7. DOCETAXEL [Concomitant]
     Active Substance: DOCETAXEL
     Indication: Product used for unknown indication
     Dosage: 6 CYCLE
     Route: 065
  8. PREDNISOLONE [Concomitant]
     Active Substance: PREDNISOLONE
     Indication: Product used for unknown indication
     Route: 065
     Dates: end: 202209
  9. ABIRATERONE [Concomitant]
     Active Substance: ABIRATERONE
     Indication: Product used for unknown indication
     Route: 065
     Dates: end: 202209
  10. BICALUTAMIDE [Concomitant]
     Active Substance: BICALUTAMIDE
     Indication: Product used for unknown indication
     Route: 065
     Dates: start: 202103

REACTIONS (6)
  - Metastases to the respiratory system [Unknown]
  - Metastases to bone [Unknown]
  - Metastases to spine [Unknown]
  - Bone lesion [Unknown]
  - Spinal pain [Unknown]
  - Weight decreased [Unknown]

NARRATIVE: CASE EVENT DATE: 20220801
